FAERS Safety Report 11942707 (Version 1)
Quarter: 2016Q1

REPORT INFORMATION
  Report Type: Spontaneous
  Country: US (occurrence: US)
  Receive Date: 20160125
  Receipt Date: 20160125
  Transmission Date: 20160526
  Serious: No
  Sender: FDA-Public Use
  Company Number: US-UNITED THERAPEUTICS-UNT-2015-007691

PATIENT
  Sex: Male

DRUGS (3)
  1. ORENITRAM [Suspect]
     Active Substance: TREPROSTINIL
     Indication: PULMONARY ARTERIAL HYPERTENSION
     Dosage: 0.75 MG, TID
     Route: 048
     Dates: start: 20150526
  2. ORENITRAM [Suspect]
     Active Substance: TREPROSTINIL
     Dosage: 0.675 MG, TID
     Route: 048
     Dates: start: 20150623
  3. ORENITRAM [Suspect]
     Active Substance: TREPROSTINIL
     Dosage: 1 MG,TID
     Route: 048

REACTIONS (4)
  - Drug dose omission [Unknown]
  - Diarrhoea [Unknown]
  - Treatment noncompliance [Unknown]
  - Feeling abnormal [Unknown]

NARRATIVE: CASE EVENT DATE: 2015
